FAERS Safety Report 18902190 (Version 1)
Quarter: 2021Q1

REPORT INFORMATION
  Report Type: Other
  Country: DE (occurrence: DE)
  Receive Date: 20210216
  Receipt Date: 20210216
  Transmission Date: 20210420
  Serious: Yes (Other)
  Sender: FDA-Public Use
  Company Number: DE-INVATECH-000047

PATIENT
  Age: 8 Year
  Sex: Female

DRUGS (2)
  1. VALPROIC ACID. [Suspect]
     Active Substance: VALPROIC ACID
     Indication: SEIZURE
     Dosage: 25.7MG/KG/DAY
  2. PHENOBARBITAL. [Concomitant]
     Active Substance: PHENOBARBITAL
     Indication: EPILEPSY
     Dosage: 6.4MG/KG/DAY

REACTIONS (4)
  - Lactic acidosis [Recovered/Resolved]
  - Hepatotoxicity [Recovered/Resolved]
  - Ammonia increased [Recovered/Resolved]
  - Coagulopathy [Recovered/Resolved]
